FAERS Safety Report 12579620 (Version 3)
Quarter: 2016Q3

REPORT INFORMATION
  Report Type: Spontaneous
  Country: GR (occurrence: GR)
  Receive Date: 20160721
  Receipt Date: 20160805
  Transmission Date: 20161109
  Serious: Yes (Other)
  Sender: FDA-Public Use
  Company Number: GR-AMGEN-GRCSP2016000554

PATIENT
  Age: 55 Year
  Sex: Female

DRUGS (1)
  1. PROLIA [Suspect]
     Active Substance: DENOSUMAB
     Indication: OSTEOPOROSIS
     Dosage: UNK
     Route: 065
     Dates: start: 2013

REACTIONS (13)
  - Osteonecrosis of jaw [Not Recovered/Not Resolved]
  - Peau d^orange [Recovered/Resolved]
  - Rash [Recovered/Resolved]
  - Erythema [Recovered/Resolved]
  - Pain [Recovered/Resolved]
  - Gingival bleeding [Not Recovered/Not Resolved]
  - Skin ulcer haemorrhage [Recovered/Resolved]
  - Dental caries [Not Recovered/Not Resolved]
  - Drug dose omission [Unknown]
  - Arthralgia [Recovered/Resolved]
  - Skin disorder [Recovered/Resolved]
  - Myalgia [Recovered/Resolved]
  - Device failure [Not Recovered/Not Resolved]

NARRATIVE: CASE EVENT DATE: 20130712
